FAERS Safety Report 14348574 (Version 3)
Quarter: 2018Q2

REPORT INFORMATION
  Report Type: Spontaneous
  Country: FR (occurrence: FR)
  Receive Date: 20180103
  Receipt Date: 20180531
  Transmission Date: 20180711
  Serious: Yes (Other)
  Sender: FDA-Public Use
  Company Number: FR-MERCK KGAA-2038261

PATIENT
  Age: 33 Year
  Sex: Female
  Weight: 51 kg

DRUGS (1)
  1. NOVOTHYROX [Suspect]
     Active Substance: LEVOTHYROXINE SODIUM
     Indication: THYROIDECTOMY
     Route: 048
     Dates: start: 20170516, end: 2017

REACTIONS (21)
  - Palpitations [Not Recovered/Not Resolved]
  - Tinnitus [Recovered/Resolved]
  - Arthralgia [Unknown]
  - Decreased activity [Unknown]
  - Fatigue [Not Recovered/Not Resolved]
  - Myalgia [Unknown]
  - Libido decreased [Unknown]
  - Loss of personal independence in daily activities [Unknown]
  - Headache [Recovered/Resolved]
  - Migraine [Not Recovered/Not Resolved]
  - Dizziness [Recovered/Resolved]
  - Vertigo [Not Recovered/Not Resolved]
  - Self esteem decreased [Unknown]
  - Sleep disorder [Unknown]
  - Weight decreased [Recovered/Resolved]
  - Social avoidant behaviour [Unknown]
  - Asthenia [Recovered/Resolved]
  - Mood altered [Unknown]
  - Visual impairment [Not Recovered/Not Resolved]
  - Amnesia [Unknown]
  - Alopecia [Recovered/Resolved]

NARRATIVE: CASE EVENT DATE: 201705
